FAERS Safety Report 6829731-0 (Version None)
Quarter: 2010Q3

REPORT INFORMATION
  Report Type: 
  Country: None (occurrence: None)
  Receive Date: 20100709
  Receipt Date: 20070612
  Transmission Date: 20110219
  Serious: Yes (Other)
  Sender: FDA-Public Use
  Company Number: US-PFIZER INC-2007017527

PATIENT
  Sex: Male
  Weight: 78.5 kg

DRUGS (1)
  1. CHANTIX [Suspect]
     Indication: NICOTINE DEPENDENCE
     Dates: start: 20070201

REACTIONS (6)
  - CALCULUS URETERIC [None]
  - CONSTIPATION [None]
  - HAEMATURIA [None]
  - NEPHROLITHIASIS [None]
  - PERSONALITY CHANGE [None]
  - SEDATION [None]
